FAERS Safety Report 10492912 (Version 1)
Quarter: 2014Q4

REPORT INFORMATION
  Report Type: Spontaneous
  Country: AU (occurrence: AU)
  Receive Date: 20141002
  Receipt Date: 20141002
  Transmission Date: 20150528
  Serious: Yes (Other)
  Sender: FDA-Public Use
  Company Number: PHHY2014AU128519

PATIENT
  Sex: Female

DRUGS (9)
  1. DIGOXIN. [Suspect]
     Active Substance: DIGOXIN
     Route: 064
  2. ROPIVACAINE [Suspect]
     Active Substance: ROPIVACAINE
     Route: 064
  3. MAGNESIUM [Suspect]
     Active Substance: MAGNESIUM
     Route: 064
  4. FENTANYL. [Suspect]
     Active Substance: FENTANYL
     Route: 064
  5. FLECAINIDE [Suspect]
     Active Substance: FLECAINIDE
     Route: 064
  6. OXYTOCIN. [Suspect]
     Active Substance: OXYTOCIN
     Route: 064
  7. SOTALOL. [Suspect]
     Active Substance: SOTALOL
     Route: 064
  8. METOPROLOL [Suspect]
     Active Substance: METOPROLOL
     Route: 064
  9. ADENOSINE. [Suspect]
     Active Substance: ADENOSINE
     Route: 064

REACTIONS (2)
  - Premature baby [Unknown]
  - Foetal exposure during pregnancy [Unknown]
